FAERS Safety Report 7000939-7 (Version None)
Quarter: 2010Q3

REPORT INFORMATION
  Report Type: 
  Country: None (occurrence: None)
  Receive Date: 20100920
  Receipt Date: 20100914
  Transmission Date: 20110219
  Serious: Yes (Death, Other)
  Sender: FDA-Public Use
  Company Number: TW-JNJFOC-20100904772

PATIENT

DRUGS (3)
  1. ULTRACET [Suspect]
     Indication: PAIN
     Dosage: 1 TABLET OF(TRAMADOL HCL 37.5 MG  ACETAMINOPHEN 325 MG)
     Route: 048
  2. MORPHINE [Suspect]
     Indication: ANALGESIC THERAPY
     Route: 065
  3. DOMPERIDONE [Suspect]
     Indication: ANTIEMETIC SUPPORTIVE CARE
     Route: 065

REACTIONS (3)
  - DEATH [None]
  - OESOPHAGEAL RUPTURE [None]
  - VOMITING [None]
